FAERS Safety Report 9925093 (Version 1)
Quarter: 2014Q1

REPORT INFORMATION
  Report Type: Spontaneous
  Country: US (occurrence: None)
  Receive Date: 20140225
  Receipt Date: 20140225
  Transmission Date: 20141002
  Serious: Yes (Other)
  Sender: FDA-Public Use
  Company Number: None

PATIENT
  Age: 8 Year
  Sex: Male
  Weight: 28.58 kg

DRUGS (1)
  1. QVAR [Suspect]
     Indication: ASTHMA
     Route: 055
     Dates: start: 20131101, end: 20140221

REACTIONS (3)
  - Aggression [None]
  - Suicidal ideation [None]
  - Emotional disorder [None]
